FAERS Safety Report 15509778 (Version 1)
Quarter: 2018Q4

REPORT INFORMATION
  Report Type: Spontaneous
  Country: US (occurrence: US)
  Receive Date: 20181010
  Receipt Date: 20181010
  Transmission Date: 20190205
  Serious: No
  Sender: FDA-Public Use
  Company Number: None

PATIENT
  Age: 79 Year
  Sex: Female

DRUGS (1)
  1. BCG [Suspect]
     Active Substance: BCG VACCINE

REACTIONS (2)
  - Latent tuberculosis [None]
  - Vaccination failure [None]
